FAERS Safety Report 7787547-5 (Version None)
Quarter: 2011Q3

REPORT INFORMATION
  Report Type: 
  Country: None (occurrence: None)
  Receive Date: 20110929
  Receipt Date: 20110923
  Transmission Date: 20111222
  Serious: Yes (Other)
  Sender: FDA-Public Use
  Company Number: US-ALLERGAN-1112712US

PATIENT
  Age: 51 Year
  Sex: Female

DRUGS (1)
  1. BOTOX COSMETIC [Suspect]
     Indication: SKIN WRINKLING
     Dosage: 24 UNITS, SINGLE
     Route: 030
     Dates: start: 20101207, end: 20101207

REACTIONS (10)
  - ANAPHYLACTIC SHOCK [None]
  - THROAT TIGHTNESS [None]
  - MUSCLE SPASMS [None]
  - PRURITUS GENERALISED [None]
  - VISION BLURRED [None]
  - DYSPHAGIA [None]
  - URTICARIA [None]
  - MUSCLE TWITCHING [None]
  - TOOTH DISORDER [None]
  - HEADACHE [None]
